FAERS Safety Report 9405251 (Version 1)
Quarter: 2013Q3

REPORT INFORMATION
  Report Type: Spontaneous
  Country: FR (occurrence: FR)
  Receive Date: 20130717
  Receipt Date: 20130717
  Transmission Date: 20140515
  Serious: Yes (Death)
  Sender: FDA-Public Use
  Company Number: FR-TEVA-419182ISR

PATIENT
  Age: 103 Year
  Sex: Female

DRUGS (1)
  1. FUROSEMIDE TEVA 40 MG [Suspect]
     Indication: OEDEMA PERIPHERAL
     Dosage: 160 MILLIGRAM DAILY;
     Route: 048
     Dates: start: 20130606, end: 20130607

REACTIONS (2)
  - Death [Fatal]
  - Somnolence [Unknown]
